FAERS Safety Report 9531800 (Version 1)
Quarter: 2013Q3

REPORT INFORMATION
  Report Type: Spontaneous
  Country: US (occurrence: None)
  Receive Date: 20130917
  Receipt Date: 20130917
  Transmission Date: 20140515
  Serious: Yes (Life-Threatening, Hospitalization)
  Sender: FDA-Public Use
  Company Number: None

PATIENT
  Age: 57 Year
  Sex: Male
  Weight: 123 kg

DRUGS (4)
  1. WARFARIN [Suspect]
     Indication: PULMONARY EMBOLISM
     Dosage: MAINTENANCE MEDICATION QD ORAL
     Route: 048
  2. CARVEDILOL [Concomitant]
  3. FERROUS SULFATE [Concomitant]
  4. HYDROCHLOROTHIAZIDE [Concomitant]

REACTIONS (2)
  - Faeces discoloured [None]
  - International normalised ratio increased [None]
